FAERS Safety Report 7733020-X (Version None)
Quarter: 2011Q3

REPORT INFORMATION
  Report Type: 
  Country: None (occurrence: None)
  Receive Date: 20110907
  Receipt Date: 20110826
  Transmission Date: 20111222
  Serious: Yes (Life-Threatening)
  Sender: FDA-Public Use
  Company Number: JP-UCBSA-040214

PATIENT
  Age: 33 Year
  Sex: Male

DRUGS (10)
  1. GASMOTIN [Concomitant]
     Dosage: DAILY DOSE: 15 MG
     Route: 048
  2. TEGRETOL [Concomitant]
     Dosage: DAILY DOSE: 400 MG
     Route: 048
     Dates: end: 20110813
  3. ZONISAMIDE [Concomitant]
     Dosage: DAILY DOSE: 100 MG
     Route: 048
  4. KEPPRA [Suspect]
     Indication: EPILEPSY
     Route: 048
     Dates: start: 20110808, end: 20110813
  5. TEGRETOL [Concomitant]
     Dosage: DAILY DOSE: 500 MG
     Route: 048
     Dates: start: 20110817
  6. DEPAKENE [Concomitant]
     Dosage: DAILY DOSE: UNKNOWN
     Route: 048
  7. PURSENNID [Concomitant]
     Dosage: DAILY DOSE: 24 MG
     Route: 048
  8. TEGRETOL [Concomitant]
     Dosage: DAILY DOSE: UNKNOWN
     Route: 048
     Dates: start: 20110814, end: 20110816
  9. LANSOPRAZOLE [Concomitant]
     Dosage: DAILY DOSE: 15 MG
     Route: 048
  10. VALPROATE SODIUM [Concomitant]
     Dosage: DAILY DOSE: 400 MG
     Route: 048

REACTIONS (1)
  - ALTERED STATE OF CONSCIOUSNESS [None]
